FAERS Safety Report 25447736 (Version 1)
Quarter: 2025Q2

REPORT INFORMATION
  Report Type: Spontaneous
  Country: US (occurrence: US)
  Receive Date: 20250617
  Receipt Date: 20250617
  Transmission Date: 20250716
  Serious: Yes (Other)
  Sender: SANOFI AVENTIS
  Company Number: US-SA-2025SA169271

PATIENT
  Age: 23 Year
  Sex: Female
  Weight: 73.45 kg

DRUGS (18)
  1. DUPIXENT [Suspect]
     Active Substance: DUPILUMAB
     Indication: Asthma
     Dosage: 300 MG, QOW
     Route: 058
  2. PULMICORT FLEXHALER [Concomitant]
     Active Substance: BUDESONIDE
  3. NAPROXEN [Concomitant]
     Active Substance: NAPROXEN
  4. CELEBREX [Concomitant]
     Active Substance: CELECOXIB
  5. IPRATROPIUM BROMIDE [Concomitant]
     Active Substance: IPRATROPIUM BROMIDE
  6. DICYCLOMINE HYDROCHLORIDE [Concomitant]
     Active Substance: DICYCLOMINE HYDROCHLORIDE
  7. CEPHALEXIN [Concomitant]
     Active Substance: CEPHALEXIN
  8. GABAPENTIN [Concomitant]
     Active Substance: GABAPENTIN
  9. HYDROXYCHLOROQUINE SULFATE [Concomitant]
     Active Substance: HYDROXYCHLOROQUINE SULFATE
  10. TRAMADOL HCL [Concomitant]
     Active Substance: TRAMADOL HYDROCHLORIDE
  11. ONDANSETRON HYDROCHLORIDE [Concomitant]
     Active Substance: ONDANSETRON HYDROCHLORIDE
  12. VESICARE [Concomitant]
     Active Substance: SOLIFENACIN SUCCINATE
  13. ALBUTEROL SULFATE [Concomitant]
     Active Substance: ALBUTEROL SULFATE
  14. RIFAMPIN [Concomitant]
     Active Substance: RIFAMPIN
  15. SPIRIVA RESPIMAT [Concomitant]
     Active Substance: TIOTROPIUM BROMIDE
  16. BREZTRI AEROSPHERE [BUDESONIDE;FORMOTEROL FUMARATE DIHYDRATE;GLYCOPYRR [Concomitant]
  17. FAMOTIDINE [Concomitant]
     Active Substance: FAMOTIDINE
  18. PREDNISONE [Concomitant]
     Active Substance: PREDNISONE

REACTIONS (12)
  - Kidney infection [Unknown]
  - Lupus-like syndrome [Unknown]
  - Asthma [Unknown]
  - Rebound effect [Unknown]
  - Fatigue [Unknown]
  - Malaise [Unknown]
  - Pharyngitis [Unknown]
  - Cough [Unknown]
  - Chest discomfort [Unknown]
  - Lung disorder [Unknown]
  - Respiration abnormal [Unknown]
  - Headache [Unknown]

NARRATIVE: CASE EVENT DATE: 20240601
